FAERS Safety Report 7267891-0 (Version None)
Quarter: 2011Q1

REPORT INFORMATION
  Report Type: 
  Country: None (occurrence: None)
  Receive Date: 20110201
  Receipt Date: 20110127
  Transmission Date: 20110831
  Serious: Yes (Life-Threatening, Hospitalization, Other)
  Sender: FDA-Public Use
  Company Number: US-ABBOTT-11P-163-0701011-00

PATIENT
  Sex: Female

DRUGS (8)
  1. RALTEGRAVIR POTASSIUM [Suspect]
     Route: 048
     Dates: end: 20100727
  2. VANCOMYCIN [Suspect]
     Indication: PYREXIA
     Route: 042
     Dates: end: 20100512
  3. ENALAPRIL MALEATE [Suspect]
     Indication: CARDIOMYOPATHY
     Route: 048
     Dates: end: 20100512
  4. VALACYCLOVIR HYDROCHLORIDE [Suspect]
     Indication: PROPHYLAXIS
     Route: 048
     Dates: end: 20100512
  5. NORVIR [Suspect]
     Indication: PRODUCT USED FOR UNKNOWN INDICATION
  6. RALTEGRAVIR POTASSIUM [Suspect]
     Indication: HIV INFECTION
     Route: 048
     Dates: start: 20080208, end: 20090114
  7. CEFTAZIDIME [Suspect]
     Indication: PNEUMONIA
     Route: 042
     Dates: end: 20100515
  8. PENTAMIDINE ISETHIONATE [Concomitant]
     Indication: PRODUCT USED FOR UNKNOWN INDICATION
     Dates: start: 20100201, end: 20100701

REACTIONS (41)
  - RENAL FAILURE ACUTE [None]
  - DEHYDRATION [None]
  - FUNGAEMIA [None]
  - HYPOKALAEMIA [None]
  - TACHYCARDIA [None]
  - RENAL CYST [None]
  - PNEUMONIA [None]
  - NYSTAGMUS [None]
  - TYPE 2 DIABETES MELLITUS [None]
  - DEAFNESS [None]
  - LUNG DISORDER [None]
  - BLOOD GLUCOSE INCREASED [None]
  - POLYURIA [None]
  - TREATMENT NONCOMPLIANCE [None]
  - PANCREATITIS [None]
  - PYREXIA [None]
  - MENTAL STATUS CHANGES [None]
  - HEPATIC STEATOSIS [None]
  - OEDEMA PERIPHERAL [None]
  - DEPRESSION [None]
  - PLEURAL EFFUSION [None]
  - PAIN IN EXTREMITY [None]
  - SUICIDAL IDEATION [None]
  - RHINOVIRUS INFECTION [None]
  - ELECTROCARDIOGRAM QT PROLONGED [None]
  - RESPIRATORY RATE INCREASED [None]
  - TREMOR [None]
  - RASH PRURITIC [None]
  - LETHARGY [None]
  - POLYDIPSIA [None]
  - HAEMOLYTIC ANAEMIA [None]
  - HERPES ZOSTER [None]
  - METABOLIC ACIDOSIS [None]
  - METAPNEUMOVIRUS INFECTION [None]
  - APHASIA [None]
  - DYSPNOEA [None]
  - HYPONATRAEMIA [None]
  - TACHYPNOEA [None]
  - DIARRHOEA [None]
  - DIABETIC KETOACIDOSIS [None]
  - THROMBOCYTOPENIA [None]
